FAERS Safety Report 23040697 (Version 4)
Quarter: 2023Q4

REPORT INFORMATION
  Report Type: Report from Study
  Country: US (occurrence: US)
  Receive Date: 20231006
  Receipt Date: 20231201
  Transmission Date: 20240110
  Serious: Yes (Other)
  Sender: FDA-Public Use
  Company Number: US-MYOVANT SCIENCES GMBH-2023MYSCI0901065

PATIENT
  Age: 32 Year
  Sex: Female
  Weight: 107.03 kg

DRUGS (5)
  1. ESTRADIOL\NORETHINDRONE ACETATE\RELUGOLIX [Suspect]
     Active Substance: ESTRADIOL\NORETHINDRONE ACETATE\RELUGOLIX
     Indication: Contraception
     Dosage: 1 TAB, QD
     Route: 048
     Dates: start: 20230717, end: 20230822
  2. ESTRADIOL\NORETHINDRONE ACETATE\RELUGOLIX [Suspect]
     Active Substance: ESTRADIOL\NORETHINDRONE ACETATE\RELUGOLIX
     Indication: Uterine leiomyoma
  3. IBUPROFEN [Concomitant]
     Active Substance: IBUPROFEN
     Indication: Pain
     Dosage: 1 TAB, PRN
     Route: 065
     Dates: start: 2022
  4. CHOLECALCIFEROL [Concomitant]
     Active Substance: CHOLECALCIFEROL
     Indication: Vitamin D deficiency
     Dosage: 1 TAB, BID
     Route: 065
     Dates: start: 20230609, end: 20230824
  5. GLICLAZIDE [Concomitant]
     Active Substance: GLICLAZIDE
     Indication: Seasonal allergy
     Dosage: 1 TAB, PRN
     Route: 065
     Dates: start: 2010

REACTIONS (2)
  - Suicidal ideation [Recovered/Resolved]
  - Depression [Recovered/Resolved]

NARRATIVE: CASE EVENT DATE: 20230722
